FAERS Safety Report 15389569 (Version 1)
Quarter: 2018Q3

REPORT INFORMATION
  Report Type: Spontaneous
  Country: US (occurrence: US)
  Receive Date: 20180907
  Receipt Date: 20180907
  Transmission Date: 20181010
  Serious: Yes (Other)
  Sender: FDA-Public Use
  Company Number: None

PATIENT
  Age: 41 Year
  Sex: Male
  Weight: 96.75 kg

DRUGS (3)
  1. SINGULAIR [Suspect]
     Active Substance: MONTELUKAST SODIUM
     Indication: ASTHMA
     Route: 048
     Dates: start: 20180415, end: 20180831
  2. QVAR [Concomitant]
     Active Substance: BECLOMETHASONE DIPROPIONATE
     Dates: start: 20160416
  3. CLARITIN [Concomitant]
     Active Substance: LORATADINE
     Dates: start: 20060101

REACTIONS (6)
  - Suicidal ideation [None]
  - Depression [None]
  - Aggression [None]
  - Agitation [None]
  - Therapy cessation [None]
  - Anxiety [None]

NARRATIVE: CASE EVENT DATE: 20180831
